FAERS Safety Report 17964101 (Version 1)
Quarter: 2020Q2

REPORT INFORMATION
  Report Type: Spontaneous
  Country: DK (occurrence: DK)
  Receive Date: 20200630
  Receipt Date: 20200630
  Transmission Date: 20200714
  Serious: Yes (Other)
  Sender: FDA-Public Use
  Company Number: DK-NOVA LABORATORIES LIMITED-2086891

PATIENT
  Age: 55 Year
  Sex: Female

DRUGS (1)
  1. PURIXAN [Suspect]
     Active Substance: MERCAPTOPURINE
     Indication: COLITIS ULCERATIVE
     Route: 048
     Dates: start: 201605, end: 201910

REACTIONS (16)
  - Epistaxis [Unknown]
  - Product substitution issue [None]
  - Skin exfoliation [Unknown]
  - Headache [Unknown]
  - Depressed mood [Unknown]
  - Alopecia [Unknown]
  - Colitis [Unknown]
  - Eczema [Unknown]
  - Contusion [Unknown]
  - Intestinal ulcer [Unknown]
  - Fatigue [Unknown]
  - Abdominal pain upper [Unknown]
  - Arthralgia [Unknown]
  - Oedema peripheral [Unknown]
  - Haematochezia [Unknown]
  - Off label use [None]

NARRATIVE: CASE EVENT DATE: 2016
